FAERS Safety Report 9907072 (Version 1)
Quarter: 2014Q1

REPORT INFORMATION
  Report Type: Spontaneous
  Country: US (occurrence: US)
  Receive Date: 20140218
  Receipt Date: 20140218
  Transmission Date: 20141002
  Serious: No
  Sender: FDA-Public Use
  Company Number: US-GILEAD-2014-0094312

PATIENT
  Age: 52 Year
  Sex: Male

DRUGS (1)
  1. HEPSERA [Suspect]
     Indication: HEPATITIS B
     Dosage: 10 MG, UNK
     Route: 065
     Dates: start: 20111209

REACTIONS (11)
  - Local swelling [Unknown]
  - Joint swelling [Unknown]
  - Musculoskeletal stiffness [Unknown]
  - Pain in extremity [Unknown]
  - Hypoaesthesia [Unknown]
  - Arthralgia [Unknown]
  - Weight increased [Unknown]
  - Unevaluable event [Unknown]
  - Hypertension [Unknown]
  - Heart rate increased [Unknown]
  - Paraesthesia [Unknown]
